FAERS Safety Report 4997804-3 (Version None)
Quarter: 2006Q2

REPORT INFORMATION
  Report Type: 
  Country: None (occurrence: None)
  Receive Date: 20060510
  Receipt Date: 20050829
  Transmission Date: 20061013
  Serious: No
  Sender: FDA-Public Use
  Company Number: US-BRISTOL-MYERS SQUIBB COMPANY-13093885

PATIENT
  Sex: Female

DRUGS (1)
  1. MONOPRIL TABS 40 MG [Suspect]
     Route: 048

REACTIONS (4)
  - FATIGUE [None]
  - FLUSHING [None]
  - HYPERHIDROSIS [None]
  - TEMPERATURE INTOLERANCE [None]
